FAERS Safety Report 12515954 (Version 1)
Quarter: 2016Q2

REPORT INFORMATION
  Report Type: Spontaneous
  Country: SI (occurrence: SI)
  Receive Date: 20160630
  Receipt Date: 20160630
  Transmission Date: 20160815
  Serious: Yes (Other)
  Sender: FDA-Public Use
  Company Number: SI-TEVA-670729ISR

PATIENT
  Age: 65 Year
  Sex: Female

DRUGS (6)
  1. TRAMAL [Concomitant]
     Active Substance: TRAMADOL
  2. LACTECON [Concomitant]
  3. CARBOPLATIN. [Suspect]
     Active Substance: CARBOPLATIN
     Indication: OVARIAN CANCER METASTATIC
     Route: 042
     Dates: start: 20160602, end: 20160602
  4. NAKLOFEN [Concomitant]
     Active Substance: DICLOFENAC SODIUM
  5. GEMCITABINE [Concomitant]
     Active Substance: GEMCITABINE\GEMCITABINE HYDROCHLORIDE
  6. NALGESIN [Concomitant]

REACTIONS (1)
  - Infusion related reaction [Recovered/Resolved]

NARRATIVE: CASE EVENT DATE: 20160602
